FAERS Safety Report 6891861-5 (Version None)
Quarter: 2010Q3

REPORT INFORMATION
  Report Type: 
  Country: None (occurrence: None)
  Receive Date: 20100731
  Receipt Date: 20071109
  Transmission Date: 20110219
  Serious: No
  Sender: FDA-Public Use
  Company Number: US-PFIZER INC-2007095677

PATIENT
  Sex: Female
  Weight: 71.8 kg

DRUGS (3)
  1. GABAPENTIN [Suspect]
     Indication: NEUROPATHY PERIPHERAL
     Route: 048
     Dates: start: 20070101
  2. CHEMOTHERAPY NOS [Concomitant]
  3. CORTICOSTEROIDS [Concomitant]

REACTIONS (1)
  - WEIGHT INCREASED [None]
